FAERS Safety Report 6285132-8 (Version None)
Quarter: 2009Q3

REPORT INFORMATION
  Report Type: 
  Country: None (occurrence: None)
  Receive Date: 20090727
  Receipt Date: 20090715
  Transmission Date: 20100115
  Serious: Yes (Hospitalization)
  Sender: FDA-Public Use
  Company Number: FR-PFIZER INC-2009240359

PATIENT
  Age: 86 Year

DRUGS (11)
  1. ALDACTONE [Suspect]
     Dosage: 50 MG, 1X/DAY
     Dates: start: 20040101
  2. ALDACTONE [Suspect]
     Dosage: 75 MG, 1X/DAY
     Dates: end: 20090409
  3. KARDEGIC [Concomitant]
     Dosage: 10 MG, 1X/DAY
     Route: 048
     Dates: start: 20070101
  4. IKOREL [Concomitant]
     Dosage: 10 MG, 1X/DAY
     Route: 048
     Dates: start: 20070101
  5. FLECAINIDE ACETATE [Concomitant]
     Indication: ATRIAL FIBRILLATION
     Dosage: 100 MG, 2X/DAY
     Route: 048
     Dates: start: 20070101
  6. LANZOR [Concomitant]
     Dosage: 15 MG, 1X/DAY
     Route: 048
     Dates: start: 20070101
  7. ZOLPIDEM [Concomitant]
     Dosage: 10 MG, 1X/DAY
     Route: 048
     Dates: end: 20090401
  8. ENDOTELON [Concomitant]
     Dosage: 150 MG, 2X/DAY
     Route: 048
     Dates: start: 20070101
  9. OSTRAM [Concomitant]
     Dosage: 1 DF, 1X/DAY
     Route: 048
     Dates: start: 20070101, end: 20090401
  10. ATARAX [Concomitant]
     Dosage: 1 DF, 1X/DAY
     Route: 048
     Dates: start: 20070101, end: 20090401
  11. TANAKAN [Concomitant]
     Dosage: 40 MG, 3X/DAY
     Route: 048
     Dates: start: 20070101, end: 20090401

REACTIONS (4)
  - BALANCE DISORDER [None]
  - CONFUSIONAL STATE [None]
  - HYPOCHLORAEMIA [None]
  - HYPONATRAEMIA [None]
